FAERS Safety Report 18685338 (Version 2)
Quarter: 2021Q1

REPORT INFORMATION
  Report Type: Report from Study
  Country: None (occurrence: US)
  Receive Date: 20201231
  Receipt Date: 20210113
  Transmission Date: 20210419
  Serious: Yes (Other)
  Sender: FDA-Public Use
  Company Number: US-ABBVIE-20K-163-3704329-00

PATIENT
  Age: 50 Year
  Sex: Female

DRUGS (5)
  1. METHYLPREDNISOLONE ACETATE. [Suspect]
     Active Substance: METHYLPREDNISOLONE ACETATE
     Indication: PAIN
     Dosage: ONE SHOT EVERY 3?4 MONTH
     Route: 065
     Dates: end: 202006
  2. RINVOQ [Suspect]
     Active Substance: UPADACITINIB
     Route: 048
     Dates: start: 202003, end: 202003
  3. RINVOQ [Suspect]
     Active Substance: UPADACITINIB
     Route: 048
     Dates: start: 202005, end: 202011
  4. RINVOQ [Suspect]
     Active Substance: UPADACITINIB
     Indication: RHEUMATOID ARTHRITIS
     Route: 048
     Dates: start: 201911, end: 202001
  5. HUMIRA [Suspect]
     Active Substance: ADALIMUMAB
     Indication: PRODUCT USED FOR UNKNOWN INDICATION
     Route: 058
     Dates: start: 201904, end: 202005

REACTIONS (22)
  - Toothache [Recovered/Resolved]
  - Bronchitis [Recovered/Resolved]
  - Abscess limb [Not Recovered/Not Resolved]
  - Lip exfoliation [Recovering/Resolving]
  - Lip discolouration [Recovering/Resolving]
  - Nasopharyngitis [Recovered/Resolved]
  - Soft tissue mass [Not Recovered/Not Resolved]
  - Joint neoplasm [Not Recovered/Not Resolved]
  - Pain [Not Recovered/Not Resolved]
  - Bronchitis [Recovered/Resolved]
  - Blood blister [Not Recovered/Not Resolved]
  - Bone disorder [Unknown]
  - Joint injury [Not Recovered/Not Resolved]
  - Atypical pneumonia [Recovered/Resolved]
  - Haematoma [Not Recovered/Not Resolved]
  - Limb mass [Not Recovered/Not Resolved]
  - Nausea [Recovering/Resolving]
  - Loose tooth [Recovered/Resolved]
  - Peritoneal cyst [Recovered/Resolved]
  - Drug hypersensitivity [Recovered/Resolved]
  - Influenza [Recovered/Resolved]
  - Cyst [Not Recovered/Not Resolved]

NARRATIVE: CASE EVENT DATE: 201912
